FAERS Safety Report 21292974 (Version 1)
Quarter: 2022Q3

REPORT INFORMATION
  Report Type: Report from Study
  Country: CN (occurrence: CN)
  Receive Date: 20220905
  Receipt Date: 20220905
  Transmission Date: 20221027
  Serious: Yes (Death, Other)
  Sender: FDA-Public Use
  Company Number: CN-SUN PHARMACEUTICAL INDUSTRIES LTD-2022R1-353255

PATIENT
  Age: 87 Year
  Sex: Male

DRUGS (4)
  1. DOBUTAMINE [Suspect]
     Active Substance: DOBUTAMINE HYDROCHLORIDE
     Indication: Stress cardiomyopathy
     Dosage: UNK
     Route: 065
  2. NOREPINEPHRINE [Suspect]
     Active Substance: NOREPINEPHRINE
     Indication: Septic shock
     Dosage: UNK
     Route: 065
  3. LEVOSIMENDAN [Suspect]
     Active Substance: LEVOSIMENDAN
     Indication: Stress cardiomyopathy
     Dosage: UNK
     Route: 065
  4. METARAMINOL [Suspect]
     Active Substance: METARAMINOL
     Indication: Stress cardiomyopathy
     Dosage: UNK
     Route: 065

REACTIONS (2)
  - Disease recurrence [Fatal]
  - Multiple organ dysfunction syndrome [Fatal]
